FAERS Safety Report 5466947-2 (Version None)
Quarter: 2007Q3

REPORT INFORMATION
  Report Type: 
  Country: None (occurrence: None)
  Receive Date: 20070920
  Receipt Date: 20070903
  Transmission Date: 20080115
  Serious: Yes (Hospitalization)
  Sender: FDA-Public Use
  Company Number: 2007BI000778

PATIENT
  Age: 63 Year
  Sex: Male

DRUGS (2)
  1. AVONEX [Suspect]
     Indication: MULTIPLE SCLEROSIS
     Dosage: 30 UG; QW;
     Dates: start: 20061020, end: 20061201
  2. PANTOPRAZOLE SODIUM [Concomitant]

REACTIONS (18)
  - ARRHYTHMIA [None]
  - CONDITION AGGRAVATED [None]
  - CSF OLIGOCLONAL BAND PRESENT [None]
  - DECUBITUS ULCER [None]
  - DEEP VEIN THROMBOSIS [None]
  - DEMYELINATION [None]
  - DEPRESSED MOOD [None]
  - DYSTROPHIC CALCIFICATION [None]
  - GAIT DISTURBANCE [None]
  - HAEMATURIA [None]
  - HYPERTENSION [None]
  - INJECTION SITE PAIN [None]
  - INTERVERTEBRAL DISC PROTRUSION [None]
  - POST PROCEDURAL HAEMATURIA [None]
  - PROSTATE CANCER [None]
  - SPONDYLITIS [None]
  - TACHYCARDIA [None]
  - VENTRICULAR EXTRASYSTOLES [None]
